FAERS Safety Report 9398273 (Version 1)
Quarter: 2013Q3

REPORT INFORMATION
  Report Type: Spontaneous
  Country: US (occurrence: US)
  Receive Date: 20130712
  Receipt Date: 20130712
  Transmission Date: 20140515
  Serious: No
  Sender: FDA-Public Use
  Company Number: US-GLAXOSMITHKLINE-A0999734A

PATIENT
  Age: 69 Year
  Sex: Male
  Weight: 111.4 kg

DRUGS (3)
  1. FLOVENT [Suspect]
     Indication: CHRONIC OBSTRUCTIVE PULMONARY DISEASE
     Dosage: 2PUFF TWICE PER DAY
     Route: 055
     Dates: start: 2004
  2. CLOPIDOGREL [Concomitant]
  3. CLONAZEPAM [Concomitant]

REACTIONS (6)
  - Oral candidiasis [Recovered/Resolved]
  - Oropharyngeal pain [Unknown]
  - Thermal burn [Unknown]
  - Product quality issue [Unknown]
  - Dysphonia [Unknown]
  - Respiratory tract congestion [Unknown]
